FAERS Safety Report 16664692 (Version 1)
Quarter: 2019Q3

REPORT INFORMATION
  Report Type: Spontaneous
  Country: FR (occurrence: FR)
  Receive Date: 20190803
  Receipt Date: 20190803
  Transmission Date: 20191004
  Serious: Yes (Hospitalization)
  Sender: FDA-Public Use
  Company Number: FR-SUN PHARMACEUTICAL INDUSTRIES LTD-2019RR-197229

PATIENT
  Age: 20 Year
  Sex: Female

DRUGS (6)
  1. TRIHEXYPHENIDYLE (CHLORHYDRATE DE) [Suspect]
     Active Substance: TRIHEXYPHENIDYL
     Indication: INTENTIONAL PRODUCT MISUSE
     Dosage: ()
     Route: 048
  2. TRAMADOL. [Suspect]
     Active Substance: TRAMADOL
     Indication: INTENTIONAL PRODUCT MISUSE
     Dosage: ()
     Route: 048
  3. NORDIAZEPAM [Suspect]
     Active Substance: NORDAZEPAM
     Indication: INTENTIONAL PRODUCT MISUSE
     Dosage: ()
     Route: 048
  4. TEMESTA (LORAZEPAM) [Suspect]
     Active Substance: LORAZEPAM
     Indication: INTENTIONAL PRODUCT MISUSE
     Dosage: ()
     Route: 048
  5. LEVOMEPROMAZINE [Suspect]
     Active Substance: LEVOMEPROMAZINE
     Indication: INTENTIONAL PRODUCT MISUSE
     Dosage: ()
     Route: 048
  6. SERESTA 50 MG, COMPRIME SECABLE [Suspect]
     Active Substance: OXAZEPAM
     Indication: INTENTIONAL PRODUCT MISUSE
     Dosage: ()
     Route: 048
     Dates: start: 2016

REACTIONS (3)
  - Hallucination, visual [Recovered/Resolved]
  - Behaviour disorder [Recovered/Resolved]
  - Drug abuse [Recovering/Resolving]

NARRATIVE: CASE EVENT DATE: 2016
